FAERS Safety Report 10548342 (Version 1)
Quarter: 2014Q4

REPORT INFORMATION
  Report Type: Spontaneous
  Country: US (occurrence: None)
  Receive Date: 20141027
  Receipt Date: 20141027
  Transmission Date: 20150529
  Serious: No
  Sender: FDA-Public Use
  Company Number: None

PATIENT
  Age: 49 Year
  Sex: Female
  Weight: 57.15 kg

DRUGS (1)
  1. OMEPRAZOLE DR [Suspect]
     Active Substance: OMEPRAZOLE
     Dosage: 30 TWICE DAILY TAKEN BY MOUTH
     Route: 048
     Dates: start: 20140804, end: 20141014

REACTIONS (3)
  - Weight decreased [None]
  - Abdominal pain upper [None]
  - Gastritis [None]

NARRATIVE: CASE EVENT DATE: 20140903
